FAERS Safety Report 25251953 (Version 2)
Quarter: 2025Q3

REPORT INFORMATION
  Report Type: Spontaneous
  Country: US (occurrence: US)
  Receive Date: 20250429
  Receipt Date: 20250806
  Transmission Date: 20251021
  Serious: Yes (Hospitalization, Other)
  Sender: AURINIA PHARMACEUTICALS
  Company Number: US-AURINIA PHARMACEUTICALS INC.-AUR-008631

PATIENT
  Age: 35 Year
  Sex: Female

DRUGS (1)
  1. LUPKYNIS [Suspect]
     Active Substance: VOCLOSPORIN
     Indication: Lupus nephritis
     Dosage: 15.8 MILLIGRAM, BID
     Route: 048
     Dates: start: 20220228

REACTIONS (6)
  - Proteinuria [Recovered/Resolved]
  - Systemic lupus erythematosus [Recovered/Resolved]
  - Large intestinal obstruction [Unknown]
  - Drug ineffective [Unknown]
  - Therapy interrupted [Unknown]
  - Treatment noncompliance [Unknown]

NARRATIVE: CASE EVENT DATE: 20241108
